FAERS Safety Report 16680221 (Version 1)
Quarter: 2019Q3

REPORT INFORMATION
  Report Type: Not Available
  Country: CA (occurrence: CA)
  Receive Date: 20190807
  Receipt Date: 20190807
  Transmission Date: 20191004
  Serious: Yes (Other)
  Sender: FDA-Public Use
  Company Number: CA-ANIPHARMA-2019-CA-000922

PATIENT
  Age: 31 Year
  Sex: Male

DRUGS (2)
  1. JINARC [Suspect]
     Active Substance: TOLVAPTAN
     Indication: CONGENITAL CYSTIC KIDNEY DISEASE
     Dosage: 45 MG, QD (IN MORNING), ORAL; 15 MG, QD (IN EVENING), ORAL
     Route: 048
     Dates: start: 20180817, end: 20190705
  2. CANDESARTAN CILEXETIL. [Suspect]
     Active Substance: CANDESARTAN CILEXETIL
     Indication: HYPERTENSION
     Dosage: 16 MG, QD, ORAL
     Route: 048
     Dates: start: 20180211

REACTIONS (8)
  - Sluggishness [Unknown]
  - Polydipsia [Unknown]
  - Abdominal distension [Unknown]
  - Alanine aminotransferase increased [Recovered/Resolved]
  - Blood pressure fluctuation [Unknown]
  - Condition aggravated [Unknown]
  - Procedural pain [Unknown]
  - Umbilical hernia [Unknown]

NARRATIVE: CASE EVENT DATE: 20190212
